APPROVED DRUG PRODUCT: PENICILLIN V POTASSIUM
Active Ingredient: PENICILLIN V POTASSIUM
Strength: EQ 250MG BASE
Dosage Form/Route: TABLET;ORAL
Application: A061530 | Product #001
Applicant: MYLAN PHARMACEUTICALS INC
Approved: Approved Prior to Jan 1, 1982 | RLD: No | RS: No | Type: DISCN